FAERS Safety Report 6423378-6 (Version None)
Quarter: 2009Q4

REPORT INFORMATION
  Report Type: 
  Country: None (occurrence: None)
  Receive Date: 20091102
  Receipt Date: 20091027
  Transmission Date: 20100525
  Serious: Yes (Hospitalization)
  Sender: FDA-Public Use
  Company Number: A0799504A

PATIENT
  Age: 46 Year
  Sex: Male
  Weight: 103 kg

DRUGS (10)
  1. AVANDIA [Suspect]
     Dosage: 2MG TWICE PER DAY
     Dates: start: 20060501, end: 20060801
  2. AVANDAMET [Suspect]
     Dates: start: 20060801, end: 20070603
  3. CIALIS [Concomitant]
  4. ADVAIR DISKUS 100/50 [Concomitant]
  5. ALBUTEROL [Concomitant]
  6. ZOCOR [Concomitant]
  7. NORVASC [Concomitant]
  8. DIOVAN [Concomitant]
  9. ASPIRIN [Concomitant]
     Dosage: 81MG PER DAY
  10. HYDROCHLOROTHIAZIDE [Concomitant]

REACTIONS (2)
  - CARDIAC FAILURE CONGESTIVE [None]
  - CARDIOMYOPATHY [None]
